FAERS Safety Report 6032539-X (Version None)
Quarter: 2009Q1

REPORT INFORMATION
  Report Type: 
  Country: None (occurrence: None)
  Receive Date: 20090109
  Receipt Date: 20081209
  Transmission Date: 20090719
  Serious: No
  Sender: FDA-Public Use
  Company Number: A0759628A

PATIENT
  Sex: Female

DRUGS (1)
  1. TYKERB [Suspect]
     Indication: DRUG USE FOR UNKNOWN INDICATION
     Dosage: 2500MG PER DAY
     Route: 048
     Dates: start: 20081207, end: 20081207

REACTIONS (3)
  - ACCIDENTAL OVERDOSE [None]
  - FEELING ABNORMAL [None]
  - PARAESTHESIA [None]
